FAERS Safety Report 16103106 (Version 1)
Quarter: 2019Q1

REPORT INFORMATION
  Report Type: Spontaneous
  Country: IT (occurrence: IT)
  Receive Date: 20190322
  Receipt Date: 20190322
  Transmission Date: 20190418
  Serious: Yes (Hospitalization)
  Sender: FDA-Public Use
  Company Number: IT-PROVELL PHARMACEUTICALS-2064403

PATIENT
  Age: 50 Year
  Sex: Female

DRUGS (4)
  1. EN [Concomitant]
     Active Substance: DELORAZEPAM
     Route: 048
  2. ZYPREXA [Concomitant]
     Active Substance: OLANZAPINE
     Route: 048
  3. DEPAKIN [Concomitant]
     Active Substance: VALPROATE SODIUM
     Route: 048
  4. EUTHYROX [Suspect]
     Active Substance: LEVOTHYROXINE SODIUM
     Indication: SUBSTANCE ABUSE
     Route: 048
     Dates: start: 20190224, end: 20190224

REACTIONS (2)
  - Speech disorder [Recovered/Resolved]
  - Substance abuse [Recovered/Resolved]

NARRATIVE: CASE EVENT DATE: 20190224
